FAERS Safety Report 7205605-0 (Version None)
Quarter: 2010Q4

REPORT INFORMATION
  Report Type: 
  Country: None (occurrence: None)
  Receive Date: 20101231
  Receipt Date: 20101222
  Transmission Date: 20110411
  Serious: Yes (Hospitalization)
  Sender: FDA-Public Use
  Company Number: JP-NOVOPROD-319855

PATIENT
  Age: 80 Year
  Sex: Male
  Weight: 58 kg

DRUGS (3)
  1. NOVORAPID 30 MIX CHU FLEXPEN [Suspect]
     Indication: DIABETES MELLITUS
     Dosage: UNK
     Route: 058
     Dates: start: 20071201, end: 20100401
  2. ALFAROL [Concomitant]
     Dosage: 1.5 UG, QD
     Route: 048
     Dates: start: 20060701
  3. ASPIRIN [Concomitant]
     Dosage: 100 MG, QD
     Route: 048

REACTIONS (3)
  - ANTI-INSULIN ANTIBODY INCREASED [None]
  - HYPOGLYCAEMIA [None]
  - INSULIN AUTOIMMUNE SYNDROME [None]
